FAERS Safety Report 6614437-3 (Version None)
Quarter: 2010Q1

REPORT INFORMATION
  Report Type: 
  Country: None (occurrence: None)
  Receive Date: 20100303
  Receipt Date: 20100303
  Transmission Date: 20100710
  Serious: No
  Sender: FDA-Public Use
  Company Number: None

PATIENT
  Age: 61 Year
  Sex: Female

DRUGS (3)
  1. LEVAQUIN [Suspect]
     Dates: start: 20100203, end: 20100211
  2. LEVAQUIN [Concomitant]
  3. HYDROMET SYRUP (COUGH) [Concomitant]

REACTIONS (5)
  - JOINT RANGE OF MOTION DECREASED [None]
  - MUSCULOSKELETAL PAIN [None]
  - NEUROPATHY PERIPHERAL [None]
  - PAIN IN EXTREMITY [None]
  - TENDON RUPTURE [None]
